FAERS Safety Report 14196506 (Version 1)
Quarter: 2017Q4

REPORT INFORMATION
  Report Type: Spontaneous
  Country: US (occurrence: US)
  Receive Date: 20171116
  Receipt Date: 20171116
  Transmission Date: 20180321
  Serious: No
  Sender: FDA-Public Use
  Company Number: US-NOVOPROD-546937

PATIENT
  Age: 64 Year
  Sex: Male

DRUGS (2)
  1. NOVOLOG MIX 70/30 [Suspect]
     Active Substance: INSULIN ASPART
     Dosage: 50 U, QD
     Route: 058
     Dates: start: 201608
  2. NOVOLOG MIX 70/30 [Suspect]
     Active Substance: INSULIN ASPART
     Indication: TYPE 2 DIABETES MELLITUS
     Dosage: 30-40 IU, QD
     Route: 058
     Dates: start: 201608

REACTIONS (2)
  - Vision blurred [Unknown]
  - Blood glucose increased [Unknown]
